FAERS Safety Report 10567738 (Version 1)
Quarter: 2014Q4

REPORT INFORMATION
  Report Type: Spontaneous
  Country: US (occurrence: None)
  Receive Date: 20141024
  Receipt Date: 20141024
  Transmission Date: 20150529
  Serious: Yes (Hospitalization)
  Sender: FDA-Public Use
  Company Number: GTI002611

PATIENT
  Sex: Female

DRUGS (17)
  1. ALBUTEROL /00139501/ [Concomitant]
     Active Substance: ALBUTEROL
  2. PREDNISONE. [Concomitant]
     Active Substance: PREDNISONE
  3. OXYCODONE [Concomitant]
     Active Substance: OXYCODONE
  4. NEXIUM [Concomitant]
     Active Substance: ESOMEPRAZOLE MAGNESIUM
  5. LORAZEPAM. [Concomitant]
     Active Substance: LORAZEPAM
  6. LISINOPRIL. [Concomitant]
     Active Substance: LISINOPRIL
  7. MAXALT [Concomitant]
     Active Substance: RIZATRIPTAN BENZOATE
  8. VICKS DAYQUIL [Concomitant]
     Active Substance: DEXTROMETHORPHAN HYDROBROMIDE\GUAIFENESIN
  9. ROPINIROLE. [Concomitant]
     Active Substance: ROPINIROLE
  10. TOPIRAMATE. [Concomitant]
     Active Substance: TOPIRAMATE
  11. ZANTAC [Suspect]
     Active Substance: RANITIDINE HYDROCHLORIDE
  12. MUCINEX [Concomitant]
     Active Substance: GUAIFENESIN
  13. IPRATROPIUM [Concomitant]
     Active Substance: IPRATROPIUM
  14. PROLASTIN-C [Suspect]
     Active Substance: .ALPHA.1-PROTEINASE INHIBITOR HUMAN
     Indication: ALPHA-1 ANTI-TRYPSIN DEFICIENCY
     Route: 042
     Dates: start: 20140930
  15. DALIRESP [Concomitant]
     Active Substance: ROFLUMILAST
  16. RESTORIL [Concomitant]
     Active Substance: TEMAZEPAM
  17. PROLASTIN [Concomitant]
     Active Substance: .ALPHA.1-PROTEINASE INHIBITOR HUMAN

REACTIONS (1)
  - Pneumonia [None]

NARRATIVE: CASE EVENT DATE: 2014
